FAERS Safety Report 7093063-9 (Version None)
Quarter: 2010Q4

REPORT INFORMATION
  Report Type: 
  Country: None (occurrence: None)
  Receive Date: 20101110
  Receipt Date: 20101103
  Transmission Date: 20110411
  Serious: Yes (Life-Threatening)
  Sender: FDA-Public Use
  Company Number: FR-ELI_LILLY_AND_COMPANY-FR201011001000

PATIENT
  Sex: Female
  Weight: 70 kg

DRUGS (2)
  1. HUMALOG MIX 75/25 [Suspect]
     Indication: GESTATIONAL DIABETES
     Dosage: UNK, UNK
     Route: 058
     Dates: start: 20091022, end: 20091105
  2. HUMALOG [Suspect]
     Indication: GESTATIONAL DIABETES

REACTIONS (3)
  - DRUG DISPENSING ERROR [None]
  - DRUG EXPOSURE DURING PREGNANCY [None]
  - HYPOGLYCAEMIA [None]
